FAERS Safety Report 8540582 (Version 2)
Quarter: 2013Q3

REPORT INFORMATION
  Report Type: Report from Study
  Country: CA (occurrence: CA)
  Receive Date: 20120502
  Receipt Date: 20130701
  Transmission Date: 20140515
  Serious: Yes (Life-Threatening, Hospitalization, Other)
  Sender: FDA-Public Use
  Company Number: CA-BRISTOL-MYERS SQUIBB COMPANY-16550618

PATIENT
  Age: 71 Year
  Sex: Female

DRUGS (15)
  1. ORENCIA [Suspect]
     Indication: RHEUMATOID ARTHRITIS
     Dosage: LAST INF-21AUG12?DRUD INTRPD:20JUN2013
     Route: 042
     Dates: start: 20100729
  2. METHOTREXATE [Suspect]
     Dosage: INJECTION
  3. GABAPENTIN [Concomitant]
  4. FOLIC ACID [Concomitant]
  5. OXYCONTIN [Concomitant]
     Dosage: 1DF=5 TABS
  6. PREDNISONE [Concomitant]
  7. ACIDOPHILUS [Concomitant]
  8. VITAMIN B-50 [Concomitant]
  9. VITAMIN D [Concomitant]
  10. OXYBUTYNIN [Concomitant]
  11. SYMBICORT [Concomitant]
  12. HYDROMORPHONE [Concomitant]
  13. PANTOPRAZOLE [Concomitant]
  14. CALCIUM [Concomitant]
  15. CYCLOBENZAPRINE [Concomitant]

REACTIONS (5)
  - Cholelithiasis [Unknown]
  - Infection [Recovering/Resolving]
  - Skin cancer [Unknown]
  - Nausea [Unknown]
  - Vomiting [Unknown]
